FAERS Safety Report 7971568-3 (Version None)
Quarter: 2011Q4

REPORT INFORMATION
  Report Type: 
  Country: None (occurrence: None)
  Receive Date: 20111212
  Receipt Date: 20111205
  Transmission Date: 20120403
  Serious: Yes (Other)
  Sender: FDA-Public Use
  Company Number: NL-ROXANE LABORATORIES, INC.-2011-RO-01740RO

PATIENT
  Age: 11 Year
  Sex: Male
  Weight: 33 kg

DRUGS (1)
  1. DEXAMETHASONE [Suspect]
     Dosage: 10 MG

REACTIONS (3)
  - CUSHING'S SYNDROME [None]
  - DRUG DISPENSING ERROR [None]
  - WRONG DRUG ADMINISTERED [None]
